FAERS Safety Report 5578528-0 (Version None)
Quarter: 2007Q4

REPORT INFORMATION
  Report Type: 
  Country: None (occurrence: None)
  Receive Date: 20071227
  Receipt Date: 20071219
  Transmission Date: 20080405
  Serious: Yes (Life-Threatening, Hospitalization, Disabling, Other)
  Sender: FDA-Public Use
  Company Number: 2007SP022755

PATIENT
  Age: 63 Year
  Sex: Female

DRUGS (4)
  1. TEMODAL [Suspect]
     Indication: GLIOBLASTOMA
     Dosage: 75 MG/M2; PO
     Route: 048
  2. LISINOPRIL (CON.) [Concomitant]
  3. AMLODIPINE (CON.) [Concomitant]
  4. RAFFONIN (CON.) [Concomitant]

REACTIONS (3)
  - BONE MARROW FAILURE [None]
  - ILL-DEFINED DISORDER [None]
  - INFECTION [None]
